FAERS Safety Report 8622559-0 (Version None)
Quarter: 2012Q3

REPORT INFORMATION
  Report Type: 
  Country: None (occurrence: None)
  Receive Date: 20120809
  Receipt Date: 20120725
  Transmission Date: 20120928
  Serious: Yes (Death, Other)
  Sender: FDA-Public Use
  Company Number: 2012MA009147

PATIENT
  Age: 27 Year
  Sex: Male
  Weight: 103 kg

DRUGS (3)
  1. CITALOPRAM HYDROBROMIDE [Suspect]
  2. KADIAN [Suspect]
  3. METHAMPHETAMINE HYDROCHLORIDE [Suspect]

REACTIONS (9)
  - TOXICITY TO VARIOUS AGENTS [None]
  - CARDIAC ARREST [None]
  - PULMONARY CONGESTION [None]
  - UNRESPONSIVE TO STIMULI [None]
  - PULMONARY ALVEOLAR HAEMORRHAGE [None]
  - HEPATIC CONGESTION [None]
  - BRAIN OEDEMA [None]
  - ACCIDENTAL DEATH [None]
  - PULMONARY OEDEMA [None]
